FAERS Safety Report 6857696-4 (Version None)
Quarter: 2010Q3

REPORT INFORMATION
  Report Type: 
  Country: None (occurrence: None)
  Receive Date: 20100719
  Receipt Date: 20080123
  Transmission Date: 20110219
  Serious: No
  Sender: FDA-Public Use
  Company Number: US-PFIZER INC-2008009271

PATIENT
  Sex: Female

DRUGS (5)
  1. CHANTIX [Suspect]
  2. LEVOXYL [Interacting]
  3. WELLBUTRIN [Interacting]
  4. LAMICTAL [Interacting]
  5. KLONOPIN [Interacting]

REACTIONS (2)
  - DEPRESSED MOOD [None]
  - DRUG INTERACTION [None]
